FAERS Safety Report 8416647-1 (Version None)
Quarter: 2012Q2

REPORT INFORMATION
  Report Type: 
  Country: None (occurrence: None)
  Receive Date: 20120606
  Receipt Date: 20120529
  Transmission Date: 20120825
  Serious: Yes (Other)
  Sender: FDA-Public Use
  Company Number: JP-JNJFOC-20120410382

PATIENT
  Sex: Female
  Weight: 76 kg

DRUGS (14)
  1. TRAMADOL HYDROCHLORIDE AND ACETAMINOPHEN [Suspect]
     Indication: BACK PAIN
     Route: 048
     Dates: start: 20120303, end: 20120303
  2. ADALAT [Concomitant]
     Indication: ESSENTIAL HYPERTENSION
     Dosage: 1 PER DAY
     Route: 048
  3. MUCOSTA [Concomitant]
     Dosage: 1 PER DAY
     Route: 048
  4. UNKNOWN MEDICATION [Concomitant]
     Dosage: 1 PER DAY
     Route: 048
  5. JANUVIA [Concomitant]
     Indication: DIABETES MELLITUS
     Route: 048
  6. TENORMIN [Concomitant]
     Indication: ESSENTIAL HYPERTENSION
     Route: 048
  7. CRESTOR [Concomitant]
     Indication: DYSLIPIDAEMIA
     Dosage: 1 PER DAY
     Route: 048
  8. NIZATIDINE [Concomitant]
     Dosage: 1 PER DAY
     Route: 048
  9. DEPAS [Concomitant]
     Indication: PAIN
     Route: 048
  10. MYONAL [Concomitant]
     Indication: PERIARTHRITIS
     Dosage: 1 PER DAY
     Route: 048
  11. SHAKUYAKUKANZOUTOU [Concomitant]
     Dosage: 1 PER DAY
     Route: 048
  12. BUP-4 [Concomitant]
     Indication: NEUROGENIC BLADDER
     Route: 048
  13. TRAMADOL HYDROCHLORIDE AND ACETAMINOPHEN [Suspect]
     Indication: PERIARTHRITIS
     Route: 048
     Dates: start: 20120303, end: 20120303
  14. OLMESARTAN MEDOXOMIL [Concomitant]
     Indication: ESSENTIAL HYPERTENSION
     Route: 048

REACTIONS (10)
  - DRY MOUTH [None]
  - DRY EYE [None]
  - THIRST [None]
  - TONGUE DRY [None]
  - TONGUE DISORDER [None]
  - HYPOAESTHESIA ORAL [None]
  - SALIVA ALTERED [None]
  - TONGUE ATROPHY [None]
  - LACRIMATION INCREASED [None]
  - PARAESTHESIA ORAL [None]
